FAERS Safety Report 15365478 (Version 1)
Quarter: 2018Q3

REPORT INFORMATION
  Report Type: Spontaneous
  Country: FR (occurrence: FR)
  Receive Date: 20180910
  Receipt Date: 20180910
  Transmission Date: 20181010
  Serious: Yes (Hospitalization)
  Sender: FDA-Public Use
  Company Number: FR-AXELLIA-001950

PATIENT
  Age: 60 Year
  Sex: Male

DRUGS (6)
  1. BRISTOPEN [Suspect]
     Active Substance: OXACILLIN SODIUM
     Indication: STAPHYLOCOCCAL SEPSIS
     Route: 042
     Dates: start: 20160115, end: 20160122
  2. RIFAMPICIN [Suspect]
     Active Substance: RIFAMPIN
     Indication: STAPHYLOCOCCAL SEPSIS
     Route: 048
     Dates: start: 20160122, end: 20160129
  3. VANCOMYCIN [Suspect]
     Active Substance: VANCOMYCIN
     Indication: STAPHYLOCOCCAL SEPSIS
     Route: 042
     Dates: start: 20160115, end: 20160122
  4. GENTAMICIN. [Suspect]
     Active Substance: GENTAMICIN
     Indication: STAPHYLOCOCCAL SEPSIS
     Route: 042
     Dates: start: 20160115, end: 20160122
  5. BACTRIM [Suspect]
     Active Substance: SULFAMETHOXAZOLE\TRIMETHOPRIM
     Indication: STAPHYLOCOCCAL SEPSIS
     Route: 048
     Dates: start: 20160129, end: 20160224
  6. OFLOCET [Suspect]
     Active Substance: OFLOXACIN
     Indication: STAPHYLOCOCCAL SEPSIS
     Route: 042
     Dates: start: 20160122, end: 20160224

REACTIONS (5)
  - Toxic skin eruption [Recovering/Resolving]
  - Dermatitis exfoliative generalised [Recovering/Resolving]
  - Renal tubular necrosis [Recovering/Resolving]
  - Acute kidney injury [Recovering/Resolving]
  - Eosinophilia [Recovering/Resolving]

NARRATIVE: CASE EVENT DATE: 201601
